FAERS Safety Report 11348516 (Version 5)
Quarter: 2015Q4

REPORT INFORMATION
  Report Type: Report from Study
  Country: NL (occurrence: NL)
  Receive Date: 20150806
  Receipt Date: 20151208
  Transmission Date: 20160304
  Serious: Yes (Hospitalization)
  Sender: FDA-Public Use
  Company Number: NL-ABBVIE-15P-114-1438227-00

PATIENT
  Age: 74 Year
  Sex: Male
  Weight: 72 kg

DRUGS (1)
  1. DUODOPA [Suspect]
     Active Substance: CARBIDOPA\LEVODOPA
     Indication: PARKINSON^S DISEASE
     Dosage: ROUTE INTESTINAL  20/5 MG/ML CONTINUOUS
     Route: 050
     Dates: start: 20150330

REACTIONS (17)
  - On and off phenomenon [Not Recovered/Not Resolved]
  - Hyperkinesia [Recovered/Resolved]
  - Drug ineffective [Recovered/Resolved]
  - Hallucination [Not Recovered/Not Resolved]
  - Arthralgia [Recovered/Resolved]
  - Pain in extremity [Not Recovered/Not Resolved]
  - Decreased activity [Recovered/Resolved]
  - Hip fracture [Recovered/Resolved]
  - Gait disturbance [Recovered/Resolved]
  - Dyskinesia [Not Recovered/Not Resolved]
  - Inappropriate schedule of drug administration [Unknown]
  - On and off phenomenon [Recovered/Resolved]
  - Joint stiffness [Recovered/Resolved]
  - Fall [Recovered/Resolved]
  - Hallucination [Recovered/Resolved]
  - Sleep disorder [Recovered/Resolved]
  - Anxiety [Not Recovered/Not Resolved]

NARRATIVE: CASE EVENT DATE: 20150731
